FAERS Safety Report 9260251 (Version 1)
Quarter: 2013Q2

REPORT INFORMATION
  Report Type: Spontaneous
  Country: US (occurrence: US)
  Receive Date: 20130429
  Receipt Date: 20130429
  Transmission Date: 20140414
  Serious: Yes (Other)
  Sender: FDA-Public Use
  Company Number: US-PFIZER INC-2013130897

PATIENT
  Age: 70 Year
  Sex: Female
  Weight: 87.98 kg

DRUGS (2)
  1. ZOLOFT [Suspect]
     Indication: DEPRESSION
     Dosage: 50 MG, DAILY
     Dates: start: 2013, end: 2013
  2. ZOLOFT [Suspect]
     Dosage: 150 MG, DAILY
     Dates: start: 2013, end: 201303

REACTIONS (2)
  - Swollen tongue [Not Recovered/Not Resolved]
  - Palatal disorder [Not Recovered/Not Resolved]
